FAERS Safety Report 7325160-4 (Version None)
Quarter: 2011Q1

REPORT INFORMATION
  Report Type: 
  Country: None (occurrence: None)
  Receive Date: 20110302
  Receipt Date: 20110217
  Transmission Date: 20110831
  Serious: Yes (Hospitalization, Disabling, Other)
  Sender: FDA-Public Use
  Company Number: PHEH2008US08678

PATIENT
  Sex: Female

DRUGS (72)
  1. AGGRENOX [Concomitant]
  2. VICODIN [Concomitant]
     Dosage: UNK
  3. KLONOPIN [Concomitant]
  4. BENADRYL ^ACHE^ [Concomitant]
  5. VANCOMYCIN [Concomitant]
  6. ZOVIRAX [Concomitant]
  7. VITAMIN E [Concomitant]
  8. THYROID TAB [Concomitant]
     Dosage: UNK
  9. FENTANYL [Concomitant]
  10. XANAX [Concomitant]
     Dosage: UNK
  11. ADDERALL 10 [Concomitant]
  12. DIAZEPAM [Concomitant]
  13. PRILOSEC [Concomitant]
  14. MUCINEX [Concomitant]
  15. DIFLUCAN [Concomitant]
  16. SOLU-MEDROL [Concomitant]
  17. ST. JOHN'S WORT [Concomitant]
  18. CLARITIN [Concomitant]
  19. FOSAMAX [Suspect]
     Dosage: UNK
  20. PRAVACHOL [Concomitant]
  21. ADVAIR DISKUS 100/50 [Concomitant]
  22. CYMBALTA [Concomitant]
  23. VOLTAREN                           /00372303/ [Concomitant]
  24. TERAZOSIN [Concomitant]
     Dosage: UNK
  25. CALCIUM [Concomitant]
  26. ATROPINE SULFATE [Concomitant]
  27. DARVOCET-N 100 [Concomitant]
  28. SELENIUM [Concomitant]
  29. GLUCOSAMINE [Concomitant]
  30. DOXEPIN [Concomitant]
  31. PLAVIX [Concomitant]
  32. SOMA [Concomitant]
  33. CORTISONE [Concomitant]
  34. BEXTRA [Concomitant]
     Dosage: UNK
  35. PROMETRIUM [Concomitant]
  36. ESTROGEN NOS [Concomitant]
  37. VITAMIN B6 [Concomitant]
  38. LEXAPRO [Concomitant]
  39. LASIX [Concomitant]
  40. PREMARIN [Concomitant]
  41. ALLEGRA [Concomitant]
  42. ACTIVASE [Concomitant]
  43. NITROGLYCERIN [Concomitant]
  44. EFFEXOR [Concomitant]
  45. FLOVENT [Concomitant]
  46. ZOMETA [Suspect]
     Indication: BONE DENSITY ABNORMAL
     Dosage: 4 MG /EVERY 3 MONTHS
     Route: 042
     Dates: start: 20040119, end: 20070701
  47. MICARDIS [Concomitant]
  48. WELLBUTRIN [Concomitant]
  49. TESSALON [Concomitant]
  50. CIPROFLOXACIN [Concomitant]
     Dosage: UNK
     Dates: end: 20090131
  51. PERCOCET [Concomitant]
  52. CELEBREX [Concomitant]
  53. DITROPAN XL [Concomitant]
  54. VIVELLE-DOT [Concomitant]
     Dosage: 0.1
  55. COMBIVENT                               /GFR/ [Concomitant]
  56. LEVSIN [Concomitant]
  57. ARICEPT [Concomitant]
  58. DESYREL [Concomitant]
  59. NASONEX [Concomitant]
  60. PREMPRO [Concomitant]
  61. FLONASE [Concomitant]
  62. SYNTHROID [Concomitant]
  63. SUDAFED 12 HOUR [Concomitant]
  64. ALTACE [Concomitant]
  65. ASPIRIN [Concomitant]
  66. MULTIVITAMIN ^LAPPE^ [Concomitant]
  67. DEPO-MEDROL [Concomitant]
  68. SEROQUEL [Concomitant]
  69. ASTELIN [Concomitant]
  70. SINUTAB ^ACHE^ [Concomitant]
  71. ASCORBIC ACID [Concomitant]
  72. SEREVENT [Concomitant]

REACTIONS (85)
  - TIBIA FRACTURE [None]
  - OSTEOPENIA [None]
  - CEREBROVASCULAR DISORDER [None]
  - RIB FRACTURE [None]
  - ROTATOR CUFF SYNDROME [None]
  - FOOT FRACTURE [None]
  - FIBULA FRACTURE [None]
  - EYE DISCHARGE [None]
  - LYMPHADENOPATHY MEDIASTINAL [None]
  - AORTIC ARTERIOSCLEROSIS [None]
  - TREMOR [None]
  - DIVERTICULUM INTESTINAL [None]
  - ANXIETY [None]
  - TOOTH DISORDER [None]
  - OSTEOPOROSIS [None]
  - PAIN IN EXTREMITY [None]
  - SINUSITIS [None]
  - LUNG NEOPLASM MALIGNANT [None]
  - TOOTH FRACTURE [None]
  - TOOTHACHE [None]
  - PULMONARY AIR LEAKAGE [None]
  - PNEUMOTHORAX [None]
  - COLONIC POLYP [None]
  - SINUS BRADYCARDIA [None]
  - BLOOD UREA NITROGEN/CREATININE RATIO INCREASED [None]
  - IRRITABLE BOWEL SYNDROME [None]
  - INJURY [None]
  - FOOT DEFORMITY [None]
  - CYST [None]
  - SOMNOLENCE [None]
  - DYSPNOEA EXERTIONAL [None]
  - COUGH [None]
  - PLEURAL FIBROSIS [None]
  - MENTAL STATUS CHANGES [None]
  - PULMONARY FIBROSIS [None]
  - LUNG INFECTION [None]
  - LIP AND/OR ORAL CAVITY CANCER [None]
  - CHEST PAIN [None]
  - BACTERIAL DISEASE CARRIER [None]
  - INSOMNIA [None]
  - FALL [None]
  - CERVICAL SPINAL STENOSIS [None]
  - EMPHYSEMA [None]
  - UPPER-AIRWAY COUGH SYNDROME [None]
  - MASTICATION DISORDER [None]
  - ATELECTASIS [None]
  - ANTIBIOTIC RESISTANT STAPHYLOCOCCUS TEST [None]
  - DIARRHOEA [None]
  - BREAST CALCIFICATIONS [None]
  - BLOOD CALCIUM DECREASED [None]
  - TRANSIENT ISCHAEMIC ATTACK [None]
  - PAIN [None]
  - ANHEDONIA [None]
  - URINARY INCONTINENCE [None]
  - HYDROPNEUMOTHORAX [None]
  - OSTEOARTHRITIS [None]
  - RETCHING [None]
  - GASTRITIS [None]
  - CARDIOMEGALY [None]
  - CHONDROMALACIA [None]
  - WHEEZING [None]
  - SPINAL OSTEOARTHRITIS [None]
  - LIP DISCOLOURATION [None]
  - FAECAL INCONTINENCE [None]
  - ABSCESS [None]
  - DEPRESSION [None]
  - INJURY CORNEAL [None]
  - OSTEORADIONECROSIS [None]
  - WOUND INFECTION STAPHYLOCOCCAL [None]
  - RECTAL POLYP [None]
  - LACERATION [None]
  - TENDON RUPTURE [None]
  - ABDOMINAL PAIN UPPER [None]
  - NEUROPATHY PERIPHERAL [None]
  - EMPYEMA [None]
  - GAIT DISTURBANCE [None]
  - NAUSEA [None]
  - RHINITIS [None]
  - OSTEONECROSIS OF JAW [None]
  - MENOPAUSE [None]
  - RENAL FAILURE ACUTE [None]
  - BRONCHOPLEURAL FISTULA [None]
  - OEDEMA PERIPHERAL [None]
  - METASTASES TO LYMPH NODES [None]
  - MUSCULOSKELETAL CHEST PAIN [None]
